FAERS Safety Report 17289606 (Version 1)
Quarter: 2020Q1

REPORT INFORMATION
  Report Type: Report from Study
  Country: TW (occurrence: TW)
  Receive Date: 20200120
  Receipt Date: 20200120
  Transmission Date: 20200409
  Serious: Yes (Hospitalization, Other)
  Sender: FDA-Public Use
  Company Number: TW-TAKEDA-2020TUS003237

PATIENT
  Age: 26 Year
  Sex: Male

DRUGS (4)
  1. TEICOPLANIN [Suspect]
     Active Substance: TEICOPLANIN
     Indication: PRODUCT USED FOR UNKNOWN INDICATION
     Dosage: UNK
     Route: 065
  2. PREDNISOLONE. [Concomitant]
     Active Substance: PREDNISOLONE
     Dosage: UNK
     Dates: start: 20191004
  3. VEDOLIZUMAB [Suspect]
     Active Substance: VEDOLIZUMAB
     Indication: CROHN^S DISEASE
     Dosage: 300 MILLIGRAM
     Route: 042
     Dates: start: 20191204
  4. MESALAZINE [Concomitant]
     Active Substance: MESALAMINE
     Dosage: UNK
     Dates: start: 20191004, end: 20191227

REACTIONS (11)
  - Deep vein thrombosis [Unknown]
  - Shock [Unknown]
  - Subcutaneous haematoma [Unknown]
  - Intestinal perforation [Unknown]
  - Thrombocytopenia [Unknown]
  - Haemoglobin decreased [Unknown]
  - Peritonitis bacterial [Unknown]
  - Diarrhoea [Unknown]
  - Dehydration [Unknown]
  - Malnutrition [Unknown]
  - Hypercapnia [Unknown]

NARRATIVE: CASE EVENT DATE: 20191231
